FAERS Safety Report 14903927 (Version 2)
Quarter: 2018Q2

REPORT INFORMATION
  Report Type: Spontaneous
  Country: CA (occurrence: CA)
  Receive Date: 20180516
  Receipt Date: 20180612
  Transmission Date: 20180711
  Serious: Yes (Other)
  Sender: FDA-Public Use
  Company Number: CA-APTEVO BIOTHERAPEUTICS LLC-18WR00005SP

PATIENT
  Age: 33 Year
  Sex: Female

DRUGS (3)
  1. FOLIC ACID. [Concomitant]
     Active Substance: FOLIC ACID
     Indication: PRODUCT USED FOR UNKNOWN INDICATION
     Dosage: 5 MG, QD
     Route: 048
  2. METFORMIN [Concomitant]
     Active Substance: METFORMIN HYDROCHLORIDE
  3. WINRHO SDF [Suspect]
     Active Substance: HUMAN RHO(D) IMMUNE GLOBULIN
     Indication: PROPHYLAXIS AGAINST RH ISOIMMUNISATION
     Dosage: 1500 IU, SINGLE
     Route: 042
     Dates: start: 20171201, end: 20171201

REACTIONS (5)
  - Premature delivery [Recovered/Resolved]
  - Conjunctival hyperaemia [Recovered/Resolved]
  - Abdominal pain [Recovered/Resolved]
  - Candida infection [Recovered/Resolved]
  - Transfusion reaction [Recovered/Resolved]

NARRATIVE: CASE EVENT DATE: 20171201
